FAERS Safety Report 18374968 (Version 2)
Quarter: 2020Q4

REPORT INFORMATION
  Report Type: Spontaneous
  Country: DE (occurrence: DE)
  Receive Date: 20201012
  Receipt Date: 20201216
  Transmission Date: 20210114
  Serious: Yes (Life-Threatening, Hospitalization, Other)
  Sender: FDA-Public Use
  Company Number: DE-009507513-2010DEU002164

PATIENT
  Age: 77 Year
  Sex: Female

DRUGS (13)
  1. CARVEDILOL. [Suspect]
     Active Substance: CARVEDILOL
     Indication: PRODUCT USED FOR UNKNOWN INDICATION
     Dosage: 1-0-1-0
     Route: 048
     Dates: start: 202003
  2. ZOLPIDEM [Concomitant]
     Active Substance: ZOLPIDEM TARTRATE
     Dosage: 0-0-0-1
     Route: 048
  3. DIPYRONE [Concomitant]
     Active Substance: DIPYRONE
     Dosage: 1-0-0-0
     Route: 048
  4. DIGITOXIN [Suspect]
     Active Substance: DIGITOXIN
     Indication: PRODUCT USED FOR UNKNOWN INDICATION
     Dosage: 1-0-0-0
     Route: 048
  5. LACTULOSE. [Concomitant]
     Active Substance: LACTULOSE
     Dosage: 1-0-0-0
     Route: 048
  6. SITAGLIPTIN PHOSPHATE [Suspect]
     Active Substance: SITAGLIPTIN PHOSPHATE
     Indication: PRODUCT USED FOR UNKNOWN INDICATION
     Dosage: 1-0-0-0
     Route: 048
  7. SPIRONOLACTONE. [Suspect]
     Active Substance: SPIRONOLACTONE
     Indication: PRODUCT USED FOR UNKNOWN INDICATION
     Dosage: 1-0-0-0
     Route: 048
     Dates: start: 202003
  8. FERROUS IODIDE [Concomitant]
     Active Substance: FERROUS IODIDE
     Dosage: 1-0-0-0
     Route: 048
  9. PANTOPRAZOLE [Concomitant]
     Active Substance: PANTOPRAZOLE
     Dosage: 1-0-0-0
     Route: 048
  10. LEVOTHYROXINE SODIUM. [Suspect]
     Active Substance: LEVOTHYROXINE SODIUM
     Indication: PRODUCT USED FOR UNKNOWN INDICATION
     Dosage: 1-0-0-0
     Route: 048
  11. EDOXABAN [Concomitant]
     Active Substance: EDOXABAN TOSYLATE
     Dosage: 1-0-0-0
     Route: 048
  12. TORSEMIDE. [Suspect]
     Active Substance: TORSEMIDE
     Indication: PRODUCT USED FOR UNKNOWN INDICATION
     Dosage: 1-0-0-0
     Route: 048
  13. METFORMIN [Concomitant]
     Active Substance: METFORMIN HYDROCHLORIDE
     Dosage: 1000 MILLIGRAM (0.5-0-0.5-0)
     Route: 048

REACTIONS (11)
  - Hyperkalaemia [Unknown]
  - Tachycardia [Recovering/Resolving]
  - Acute kidney injury [Unknown]
  - Palpitations [Recovering/Resolving]
  - Ventricular arrhythmia [Recovering/Resolving]
  - Bradycardia [Recovering/Resolving]
  - General physical health deterioration [Recovering/Resolving]
  - Syncope [Unknown]
  - Arrhythmia [Recovering/Resolving]
  - Condition aggravated [Recovering/Resolving]
  - Product monitoring error [Unknown]

NARRATIVE: CASE EVENT DATE: 20200301
